FAERS Safety Report 9882046 (Version 3)
Quarter: 2014Q1

REPORT INFORMATION
  Report Type: Report from Study
  Country: US (occurrence: US)
  Receive Date: 20140207
  Receipt Date: 20140217
  Transmission Date: 20141002
  Serious: Yes (Hospitalization)
  Sender: FDA-Public Use
  Company Number: PHEH2012US008648

PATIENT
  Age: 58 Year
  Sex: Female
  Weight: 66.4 kg

DRUGS (10)
  1. GILENYA [Suspect]
     Indication: RELAPSING-REMITTING MULTIPLE SCLEROSIS
     Dosage: 0.5 MG, QD
     Route: 048
     Dates: start: 20120410
  2. ESCITALOPRAM [Concomitant]
     Dosage: 10 MG, QD
     Route: 048
     Dates: start: 20120426
  3. ZOLPIDEM [Concomitant]
     Dosage: 5 MG, UNK
     Dates: start: 20120510
  4. SULFAMETHOXAZOLE W/TRIMETHOPRIM [Concomitant]
     Dosage: 800 MG-160 MG
     Dates: start: 20120503
  5. AZELASTINE [Concomitant]
     Route: 047
     Dates: start: 20120301
  6. AZELASTINE [Concomitant]
     Dosage: UNK UKN, PRN
     Route: 047
     Dates: start: 20101130
  7. MECLIZINE [Concomitant]
     Dosage: 1 DF, TID
     Route: 048
     Dates: start: 20120224
  8. COPAXONE [Concomitant]
     Dosage: 20 MG, UNK
     Route: 058
     Dates: start: 20120224
  9. GABAPENTIN [Concomitant]
     Dosage: 300 MG, UNK
     Dates: start: 20120221
  10. ALEVE [Concomitant]
     Dosage: UNK UKN,
     Dates: start: 20110913

REACTIONS (11)
  - Urinary tract infection [Not Recovered/Not Resolved]
  - Nausea [Recovered/Resolved]
  - Vomiting [Recovered/Resolved]
  - Central nervous system lesion [Unknown]
  - White blood cell count increased [Unknown]
  - Stress [Not Recovered/Not Resolved]
  - Diplopia [Not Recovered/Not Resolved]
  - Muscular weakness [Not Recovered/Not Resolved]
  - Hypoaesthesia [Not Recovered/Not Resolved]
  - Dizziness [Not Recovered/Not Resolved]
  - Blood pressure increased [Not Recovered/Not Resolved]
